FAERS Safety Report 9699968 (Version 1)
Quarter: 2013Q4

REPORT INFORMATION
  Report Type: Spontaneous
  Country: US (occurrence: US)
  Receive Date: 20131121
  Receipt Date: 20131121
  Transmission Date: 20140711
  Serious: Yes (Hospitalization)
  Sender: FDA-Public Use
  Company Number: US-BIOGENIDEC-2013BI109706

PATIENT
  Sex: Female
  Weight: 80 kg

DRUGS (5)
  1. TECFIDERA [Suspect]
     Indication: MULTIPLE SCLEROSIS
     Route: 048
     Dates: start: 201306, end: 20131018
  2. D-AMPHETAMINE [Concomitant]
     Dates: start: 20131007
  3. ASPIRIN [Concomitant]
  4. METHADONE [Concomitant]
  5. MORPHINE [Concomitant]

REACTIONS (5)
  - Multiple sclerosis relapse [Unknown]
  - Pancytopenia [Unknown]
  - Hepatic cirrhosis [Unknown]
  - Splenomegaly [Unknown]
  - Haematemesis [Unknown]
